FAERS Safety Report 14445007 (Version 1)
Quarter: 2018Q1

REPORT INFORMATION
  Report Type: Spontaneous
  Country: US (occurrence: US)
  Receive Date: 20180126
  Receipt Date: 20180126
  Transmission Date: 20180509
  Serious: No
  Sender: FDA-Public Use
  Company Number: US-PFIZER INC-2018033105

PATIENT
  Age: 54 Year
  Sex: Female
  Weight: 56.69 kg

DRUGS (3)
  1. LYRICA [Interacting]
     Active Substance: PREGABALIN
     Dosage: 100 MG, AS NEEDED (100 MG CAPSULE BY MOUTH EVERY NIGHT)
  2. LYRICA [Suspect]
     Active Substance: PREGABALIN
     Indication: FIBROMYALGIA
     Dosage: 100 MG, 2X/DAY(100 MG TWICE A DAY, ONE IN THE MORNING AND ONE AT NIGHT)
     Dates: start: 2008
  3. PERCOCET [Interacting]
     Active Substance: ACETAMINOPHEN\OXYCODONE HYDROCHLORIDE
     Indication: PAIN
     Dosage: 10 MG, 3X/DAY
     Route: 048

REACTIONS (4)
  - Dizziness [Recovered/Resolved]
  - Drug interaction [Unknown]
  - Nausea [Recovered/Resolved]
  - Vomiting [Recovered/Resolved]

NARRATIVE: CASE EVENT DATE: 201608
